FAERS Safety Report 8172721-9 (Version None)
Quarter: 2012Q1

REPORT INFORMATION
  Report Type: 
  Country: None (occurrence: None)
  Receive Date: 20120229
  Receipt Date: 20120221
  Transmission Date: 20120608
  Serious: Yes (Hospitalization)
  Sender: FDA-Public Use
  Company Number: GB-UCBSA-051089

PATIENT
  Age: 17 Year
  Sex: Male
  Weight: 70.8 kg

DRUGS (3)
  1. OXCARBAZEPINE [Concomitant]
     Indication: EPILEPSY
     Dosage: 1200 MG
     Route: 048
     Dates: start: 20040101
  2. CLOBAZAM [Concomitant]
     Indication: EPILEPSY
     Dosage: 20 MG
     Dates: start: 20080101
  3. LACOSAMIDE [Suspect]
     Indication: CONVULSION
     Route: 048
     Dates: start: 20100525, end: 20110510

REACTIONS (1)
  - UPPER LIMB FRACTURE [None]
